FAERS Safety Report 9768663 (Version 2)
Quarter: 2014Q1

REPORT INFORMATION
  Report Type: Spontaneous
  Country: AU (occurrence: AU)
  Receive Date: 20131218
  Receipt Date: 20140204
  Transmission Date: 20141002
  Serious: Yes (Hospitalization, Other)
  Sender: FDA-Public Use
  Company Number: AU-JNJFOC-20131205694

PATIENT
  Age: 48 Year
  Sex: Female

DRUGS (8)
  1. FENTANYL [Suspect]
     Indication: PRODUCT USED FOR UNKNOWN INDICATION
     Route: 062
     Dates: start: 20120302
  2. DULOXETINE [Interacting]
     Indication: BACK PAIN
     Route: 048
     Dates: start: 20120210
  3. DULOXETINE [Interacting]
     Indication: BACK PAIN
     Route: 048
     Dates: start: 20120302, end: 20120307
  4. DULOXETINE [Interacting]
     Indication: DEPRESSION
     Route: 048
     Dates: start: 20120210
  5. DULOXETINE [Interacting]
     Indication: DEPRESSION
     Route: 048
     Dates: start: 20120302, end: 20120307
  6. PANADEINE FORTE [Interacting]
     Indication: PRODUCT USED FOR UNKNOWN INDICATION
     Route: 065
     Dates: start: 20111215
  7. IBUPROFEN [Suspect]
     Indication: PRODUCT USED FOR UNKNOWN INDICATION
     Route: 065
  8. TRIFEME [Suspect]
     Indication: PRODUCT USED FOR UNKNOWN INDICATION
     Route: 065

REACTIONS (3)
  - Serotonin syndrome [Not Recovered/Not Resolved]
  - Drug interaction [Unknown]
  - Urinary incontinence [Unknown]
